FAERS Safety Report 5842896-2 (Version None)
Quarter: 2008Q3

REPORT INFORMATION
  Report Type: 
  Country: None (occurrence: None)
  Receive Date: 20080811
  Receipt Date: 20080729
  Transmission Date: 20090109
  Serious: Yes (Other)
  Sender: FDA-Public Use
  Company Number: TRP_05840_2008

PATIENT
  Age: 32 Year
  Sex: Female

DRUGS (2)
  1. RIBASPHERE [Suspect]
     Indication: HEPATITIS C VIRUS TEST
     Dosage: 800 MG QD ORAL
     Route: 048
     Dates: start: 20070426, end: 20080204
  2. PEG-INTRON [Suspect]
     Indication: HEPATITIS C VIRUS TEST
     Dosage: 150 UG 1X/WEEK SUBCUTANEOUS
     Route: 058
     Dates: start: 20070426, end: 20080204

REACTIONS (2)
  - DRUG EXPOSURE DURING PREGNANCY [None]
  - PREGNANCY [None]
